FAERS Safety Report 14421359 (Version 1)
Quarter: 2018Q1

REPORT INFORMATION
  Report Type: Spontaneous
  Country: FR (occurrence: FR)
  Receive Date: 20180122
  Receipt Date: 20180122
  Transmission Date: 20180509
  Serious: Yes (Other)
  Sender: FDA-Public Use
  Company Number: FR-ALLERGAN-1802770US

PATIENT
  Age: 49 Year
  Sex: Female

DRUGS (1)
  1. FLUOXETINE HCL UNK [Suspect]
     Active Substance: FLUOXETINE HYDROCHLORIDE
     Indication: BIPOLAR I DISORDER
     Dosage: 20 MG, QD
     Route: 065
     Dates: start: 199206, end: 199209

REACTIONS (4)
  - Off label use [Unknown]
  - Pulmonary granuloma [Recovered/Resolved]
  - Interstitial lung disease [Recovered/Resolved]
  - Pulmonary vasculitis [Recovered/Resolved]
